FAERS Safety Report 18697075 (Version 2)
Quarter: 2021Q1

REPORT INFORMATION
  Report Type: Spontaneous
  Country: US (occurrence: US)
  Receive Date: 20210104
  Receipt Date: 20210211
  Transmission Date: 20210419
  Serious: Yes (Other)
  Sender: FDA-Public Use
  Company Number: US-TEVA-2020-US-1863234

PATIENT
  Sex: Male

DRUGS (16)
  1. ARIPIPRAZOLE. [Suspect]
     Active Substance: ARIPIPRAZOLE
     Indication: TOURETTE^S DISORDER
     Dosage: 20 MILLIGRAM DAILY;
     Route: 065
  2. BENZTROPINE. [Suspect]
     Active Substance: BENZTROPINE
     Indication: TOURETTE^S DISORDER
     Route: 065
  3. PERGOLIDE [Suspect]
     Active Substance: PERGOLIDE
     Indication: TOURETTE^S DISORDER
     Route: 065
  4. GUANFACINE. [Suspect]
     Active Substance: GUANFACINE
     Dosage: 2 MILLIGRAM DAILY; ADMINISTERED EVERY EVENING
     Route: 065
  5. PIMOZIDE. [Suspect]
     Active Substance: PIMOZIDE
     Indication: TOURETTE^S DISORDER
     Route: 065
  6. AMANTADINE. [Suspect]
     Active Substance: AMANTADINE HYDROCHLORIDE
     Indication: TOURETTE^S DISORDER
     Dosage: 300 MILLIGRAM DAILY; ADMINISTERED THREE TIMES DAILY
     Route: 065
  7. CLONAZEPAM. [Suspect]
     Active Substance: CLONAZEPAM
     Indication: TOURETTE^S DISORDER
     Route: 065
  8. HALOPERIDOL. [Suspect]
     Active Substance: HALOPERIDOL
     Indication: TOURETTE^S DISORDER
     Route: 065
  9. TOPIRAMATE. [Suspect]
     Active Substance: TOPIRAMATE
     Indication: TOURETTE^S DISORDER
     Route: 065
  10. PAROXETINE. [Suspect]
     Active Substance: PAROXETINE
     Dosage: 60 MILLIGRAM DAILY; ADMINISTERED EVERY EVENING
     Route: 065
  11. ATORVASTATIN [Suspect]
     Active Substance: ATORVASTATIN
     Indication: TOURETTE^S DISORDER
     Dosage: 10 MILLIGRAM DAILY; ADMINISTERED EVERY NIGHT
     Route: 065
  12. GUANFACINE. [Suspect]
     Active Substance: GUANFACINE
     Indication: TOURETTE^S DISORDER
     Dosage: 1 MILLIGRAM DAILY; ADMINISTERED EVERY MORNING
     Route: 065
  13. CLONIDINE. [Suspect]
     Active Substance: CLONIDINE
     Indication: TOURETTE^S DISORDER
     Route: 065
  14. RISPERIDONE. [Suspect]
     Active Substance: RISPERIDONE
     Indication: TOURETTE^S DISORDER
     Route: 065
  15. OLANZAPINE. [Suspect]
     Active Substance: OLANZAPINE
     Indication: TOURETTE^S DISORDER
     Dosage: 20 MILLIGRAM DAILY; ADMINISTERED EVERY NIGHT
     Route: 065
  16. PAROXETINE. [Suspect]
     Active Substance: PAROXETINE
     Indication: TOURETTE^S DISORDER
     Dosage: 20 MILLIGRAM DAILY; ADMINISTERED EVERY MORNING
     Route: 065

REACTIONS (10)
  - Dystonia [Unknown]
  - Hypotension [Unknown]
  - Vision blurred [Unknown]
  - Aggression [Unknown]
  - Psychotic disorder [Unknown]
  - Lethargy [Unknown]
  - Dry mouth [Unknown]
  - Drug ineffective [Unknown]
  - Somnolence [Unknown]
  - Peripheral swelling [Unknown]
